FAERS Safety Report 17537830 (Version 1)
Quarter: 2020Q1

REPORT INFORMATION
  Report Type: Spontaneous
  Country: DE (occurrence: DE)
  Receive Date: 20200313
  Receipt Date: 20200313
  Transmission Date: 20200409
  Serious: Yes (Other)
  Sender: FDA-Public Use
  Company Number: DE-PFIZER INC-2020105331

PATIENT

DRUGS (1)
  1. CYTOTEC [Suspect]
     Active Substance: MISOPROSTOL
     Indication: LABOUR INDUCTION
     Dosage: SEVERAL TABLETS AT INTERVALS (DOSE OF ACTIVE INGREDIENT UNKNOWN)
     Route: 048
     Dates: start: 20120725, end: 20120727

REACTIONS (6)
  - Agitation neonatal [Recovered/Resolved]
  - Foetal exposure during delivery [Unknown]
  - Hypertonia neonatal [Recovered/Resolved]
  - Foetal heart rate increased [Recovered/Resolved]
  - Restlessness [Recovered/Resolved]
  - Foetal heart rate decreased [Recovered/Resolved]

NARRATIVE: CASE EVENT DATE: 20120725
